FAERS Safety Report 8047152-2 (Version None)
Quarter: 2012Q1

REPORT INFORMATION
  Report Type: 
  Country: None (occurrence: None)
  Receive Date: 20120116
  Receipt Date: 20120105
  Transmission Date: 20120608
  Serious: Yes (Hospitalization, Other)
  Sender: FDA-Public Use
  Company Number: US-UCBSA-048779

PATIENT
  Age: 28 Year
  Sex: Female
  Weight: 86.18 kg

DRUGS (6)
  1. PROMETHAZINE [Concomitant]
     Indication: NAUSEA
     Dosage: 25 MG EVERY 4-6 HOURS
  2. CIMZIA [Suspect]
     Indication: CROHN'S DISEASE
     Route: 058
     Dates: start: 20100601, end: 20110601
  3. LORTAB [Concomitant]
     Indication: PAIN
     Dosage: 7.5/500 MG EVERY 4-6 HOURS
  4. PANTOPRAZOLE SODIUM [Concomitant]
     Indication: GASTROOESOPHAGEAL REFLUX DISEASE
  5. HUMIRA [Suspect]
     Indication: CROHN'S DISEASE
     Route: 058
     Dates: start: 20110801
  6. HUMIRA [Suspect]
     Route: 058
     Dates: start: 20090601, end: 20100601

REACTIONS (4)
  - CHRONIC SINUSITIS [None]
  - DIABETES MELLITUS [None]
  - CROHN'S DISEASE [None]
  - PERIRECTAL ABSCESS [None]
